FAERS Safety Report 6145199-4 (Version None)
Quarter: 2009Q2

REPORT INFORMATION
  Report Type: 
  Country: None (occurrence: None)
  Receive Date: 20090406
  Receipt Date: 20090330
  Transmission Date: 20091009
  Serious: Yes (Other)
  Sender: FDA-Public Use
  Company Number: GB-B.I. PHARMACEUTICALS,INC./RIDGEFIELD-2008-UK-01499UK

PATIENT
  Sex: Male

DRUGS (8)
  1. PERSANTIN [Suspect]
     Indication: CEREBROVASCULAR ACCIDENT
     Dosage: 300MG
     Route: 048
     Dates: start: 20080826, end: 20080901
  2. ASPIRIN [Concomitant]
  3. RIFAMPIN [Concomitant]
  4. WARFARIN [Concomitant]
     Indication: CAROTID ARTERY OCCLUSION
     Route: 048
     Dates: start: 20080830
  5. SIMVASTATIN [Concomitant]
     Dosage: 40MG
     Route: 048
     Dates: start: 20080830
  6. NATRILIX SR [Concomitant]
     Indication: HYPERTENSION
     Dosage: 1.5MG
     Route: 048
  7. VALPROATE SODIUM [Concomitant]
     Indication: PARTIAL SEIZURES
     Dosage: 600MG
     Route: 048
     Dates: start: 20080830
  8. VALPROATE SODIUM [Concomitant]
     Indication: CEREBROVASCULAR ACCIDENT

REACTIONS (5)
  - ALTERED STATE OF CONSCIOUSNESS [None]
  - APHASIA [None]
  - DIZZINESS [None]
  - HEAD DISCOMFORT [None]
  - SPEECH DISORDER [None]
